FAERS Safety Report 8171342-1 (Version None)
Quarter: 2012Q1

REPORT INFORMATION
  Report Type: 
  Country: None (occurrence: None)
  Receive Date: 20120104
  Receipt Date: 20111205
  Transmission Date: 20120608
  Serious: No
  Sender: FDA-Public Use
  Company Number: 2011HGS-002912

PATIENT
  Age: 32 Year
  Sex: Female
  Weight: 113.3993 kg

DRUGS (9)
  1. PLAQUENIL (HYDROXYCHLOROQUINE SULFATE)(HYDROXYCHLOROQUINE SULFATE) [Concomitant]
  2. VICODIN(VICODIN)(PARACETAMOL, HYDROCODONE BITARTRATE) [Concomitant]
  3. METHOTREXATE [Concomitant]
  4. SKELAXIN(METAXALONE)(METAXALONE) [Concomitant]
  5. COUMADIN [Concomitant]
  6. BENLYSTA [Suspect]
     Indication: SYSTEMIC LUPUS ERYTHEMATOSUS
     Dosage: 10 MG/KG, 1 IN 28 D, INTRAVENOUS DRIP
     Route: 041
     Dates: start: 20111109
  7. LISINOPRIL [Concomitant]
  8. TRAMADOL HCL [Concomitant]
  9. PROTONIX [Concomitant]

REACTIONS (5)
  - HEADACHE [None]
  - CONTUSION [None]
  - INFUSION SITE HAEMATOMA [None]
  - PRODUCTIVE COUGH [None]
  - DIZZINESS [None]
